FAERS Safety Report 11484663 (Version 1)
Quarter: 2015Q3

REPORT INFORMATION
  Report Type: Spontaneous
  Country: US (occurrence: None)
  Receive Date: 20150909
  Receipt Date: 20150909
  Transmission Date: 20151125
  Serious: Yes (Hospitalization)
  Sender: FDA-Public Use
  Company Number: None

PATIENT
  Age: 52 Year
  Sex: Male
  Weight: 71.7 kg

DRUGS (1)
  1. TAXOTERE [Suspect]
     Active Substance: DOCETAXEL
     Dates: end: 20150610

REACTIONS (4)
  - Post procedural infection [None]
  - Nausea [None]
  - Vomiting [None]
  - Post procedural discharge [None]

NARRATIVE: CASE EVENT DATE: 20150617
